FAERS Safety Report 9089244 (Version 1)
Quarter: 2013Q1

REPORT INFORMATION
  Report Type: Report from Study
  Country: US (occurrence: US)
  Receive Date: 20130201
  Receipt Date: 20130201
  Transmission Date: 20140127
  Serious: No
  Sender: FDA-Public Use
  Company Number: US-ABBOTT-12P-163-1019562-00

PATIENT
  Sex: 0

DRUGS (6)
  1. HUMIRA [Suspect]
     Indication: CROHN^S DISEASE
     Dates: start: 20120906
  2. PENTASA [Concomitant]
     Indication: CROHN^S DISEASE
     Dosage: CURRENTLY TAPERING OFF
     Route: 048
  3. CARAFATE [Concomitant]
     Indication: GASTRIC DISORDER
     Dosage: DAILY
     Route: 048
  4. HYDROCODONE [Concomitant]
     Indication: PAIN
     Route: 048
  5. STEROIDS [Concomitant]
     Indication: PRODUCT USED FOR UNKNOWN INDICATION
  6. BULTALBITAL CAFFEINE [Concomitant]
     Indication: MIGRAINE
     Dosage: DAILY
     Route: 048

REACTIONS (4)
  - Weight increased [Not Recovered/Not Resolved]
  - Hypertension [Not Recovered/Not Resolved]
  - Local swelling [Not Recovered/Not Resolved]
  - Local swelling [Not Recovered/Not Resolved]
